FAERS Safety Report 14560501 (Version 1)
Quarter: 2018Q1

REPORT INFORMATION
  Report Type: Spontaneous
  Country: US (occurrence: US)
  Receive Date: 20180222
  Receipt Date: 20180222
  Transmission Date: 20180509
  Serious: No
  Sender: FDA-Public Use
  Company Number: US-SHIRE-US201806460

PATIENT
  Age: 82 Year
  Sex: Male

DRUGS (1)
  1. GAMMAGARD LIQUID [Suspect]
     Active Substance: HUMAN IMMUNOGLOBULIN G
     Indication: PRODUCT USED FOR UNKNOWN INDICATION
     Dosage: 30 G, 1X/WEEK FOR A MONTH AND THEN A DOSE EVERY OTHER WEEK
     Route: 042
     Dates: start: 20171206, end: 20180215

REACTIONS (3)
  - Sleep disorder [Unknown]
  - Pruritus [Unknown]
  - Dermatitis allergic [Unknown]

NARRATIVE: CASE EVENT DATE: 201801
